FAERS Safety Report 12189528 (Version 2)
Quarter: 2016Q3

REPORT INFORMATION
  Report Type: Report from Study
  Country: DE (occurrence: DE)
  Receive Date: 20160318
  Receipt Date: 20160805
  Transmission Date: 20161109
  Serious: Yes (Hospitalization)
  Sender: FDA-Public Use
  Company Number: DE-ROCHE-1727867

PATIENT
  Age: 90 Year
  Sex: Female

DRUGS (6)
  1. TOCILIZUMAB [Suspect]
     Active Substance: TOCILIZUMAB
     Dosage: NEXT DOSE ON: 04/AUG/2015
     Route: 042
     Dates: start: 20140506
  2. METHOTREXATE. [Concomitant]
     Active Substance: METHOTREXATE
     Indication: RHEUMATOID ARTHRITIS
     Dosage: 23/DEC/2009, 18/AUG/2010, 02/MAR/2011, 10/AUG/2011, 16/FEB/2012, 05/SEP/2012.
     Route: 065
     Dates: start: 20090901
  3. TOCILIZUMAB [Suspect]
     Active Substance: TOCILIZUMAB
     Indication: RHEUMATOID ARTHRITIS
     Dosage: NEXT DOSES OF (528 MG): ON 23/DEC/2009, 18/AUG/2010, 02/MAR/2011, 10/AUG/2011, 30/JAN/2013,  21/AUG/
     Route: 042
     Dates: start: 20090901
  4. TOCILIZUMAB [Suspect]
     Active Substance: TOCILIZUMAB
     Route: 042
     Dates: start: 20160224
  5. TOCILIZUMAB [Suspect]
     Active Substance: TOCILIZUMAB
     Dosage: NEXT DOSE ON 05/SEP/2012.
     Route: 042
     Dates: start: 20120216
  6. METHOTREXATE. [Concomitant]
     Active Substance: METHOTREXATE
     Dosage: NEXT DOSE: 21/AUG/2013, 14/FEB/2014.
     Route: 065
     Dates: start: 20130130

REACTIONS (2)
  - Cholelithiasis [Recovered/Resolved]
  - Cholecystitis [Recovered/Resolved]
